FAERS Safety Report 17848680 (Version 1)
Quarter: 2020Q2

REPORT INFORMATION
  Report Type: Report from Study
  Country: DO (occurrence: DO)
  Receive Date: 20200602
  Receipt Date: 20200602
  Transmission Date: 20200714
  Serious: Yes (Other)
  Sender: FDA-Public Use
  Company Number: NVSC2020DO148570

PATIENT
  Age: 79 Year
  Sex: Female

DRUGS (1)
  1. VYMADA [Suspect]
     Active Substance: SACUBITRIL\VALSARTAN
     Indication: PRODUCT USED FOR UNKNOWN INDICATION
     Dosage: 200 MG (SINCE 3 MONTHS AGO)
     Route: 065

REACTIONS (4)
  - Pain in extremity [Unknown]
  - Feeling abnormal [Unknown]
  - Malaise [Unknown]
  - Erysipelas [Not Recovered/Not Resolved]
